FAERS Safety Report 8517884-8 (Version None)
Quarter: 2012Q3

REPORT INFORMATION
  Report Type: 
  Country: None (occurrence: None)
  Receive Date: 20120718
  Receipt Date: 20110629
  Transmission Date: 20120928
  Serious: No
  Sender: FDA-Public Use
  Company Number: US-BRISTOL-MYERS SQUIBB COMPANY-15863772

PATIENT
  Sex: Male

DRUGS (3)
  1. SIMVASTATIN [Suspect]
  2. WARFARIN SODIUM [Suspect]
     Dosage: 5MG 1 1/2 A DAY ON WED
  3. ASPIRIN [Suspect]

REACTIONS (3)
  - DYSPNOEA [None]
  - DRY MOUTH [None]
  - MUSCULOSKELETAL PAIN [None]
